FAERS Safety Report 9104795 (Version 1)
Quarter: 2013Q1

REPORT INFORMATION
  Report Type: Spontaneous
  Country: US (occurrence: US)
  Receive Date: 20130220
  Receipt Date: 20130220
  Transmission Date: 20140127
  Serious: Yes (Hospitalization)
  Sender: FDA-Public Use
  Company Number: US-JNJFOC-20130203596

PATIENT
  Sex: 0

DRUGS (3)
  1. XARELTO [Suspect]
     Indication: THROMBOSIS PROPHYLAXIS
     Route: 048
     Dates: end: 20121113
  2. XARELTO [Suspect]
     Indication: HIP ARTHROPLASTY
     Route: 048
     Dates: end: 20121113
  3. NADOLOL [Suspect]
     Indication: PRODUCT USED FOR UNKNOWN INDICATION
     Route: 065

REACTIONS (9)
  - Palpitations [Recovering/Resolving]
  - Muscle spasms [Unknown]
  - Hypotension [Recovering/Resolving]
  - Chest discomfort [Recovering/Resolving]
  - Dyspnoea [Unknown]
  - Dizziness [Not Recovered/Not Resolved]
  - Fatigue [Unknown]
  - Pain in extremity [Unknown]
  - Heart rate increased [Unknown]
